FAERS Safety Report 7586818-5 (Version None)
Quarter: 2011Q3

REPORT INFORMATION
  Report Type: 
  Country: None (occurrence: None)
  Receive Date: 20110701
  Receipt Date: 20110620
  Transmission Date: 20111222
  Serious: Yes (Other)
  Sender: FDA-Public Use
  Company Number: SG-BAYER-2011-053702

PATIENT
  Age: 47 Year
  Sex: Female

DRUGS (3)
  1. CEFUROXIME [Suspect]
  2. CIPROFLOXACIN HCL [Suspect]
     Indication: PRODUCT USED FOR UNKNOWN INDICATION
  3. ERYTHROMYCIN [Suspect]

REACTIONS (1)
  - ECZEMA [None]
